FAERS Safety Report 6233893-6 (Version None)
Quarter: 2009Q2

REPORT INFORMATION
  Report Type: 
  Country: None (occurrence: None)
  Receive Date: 20090618
  Receipt Date: 20090609
  Transmission Date: 20091009
  Serious: Yes (Death)
  Sender: FDA-Public Use
  Company Number: SE-JNJFOC-20090305644

PATIENT
  Age: 47 Year
  Sex: Male

DRUGS (8)
  1. REMICADE [Suspect]
     Route: 042
  2. REMICADE [Suspect]
     Indication: ANKYLOSING SPONDYLITIS
     Route: 042
  3. ANTI-ANXIETY DRUG [Concomitant]
     Dosage: AS NEEDED
  4. NSAIDS [Concomitant]
     Dosage: LONG TERM
  5. STESOLID [Concomitant]
  6. INDOMEE [Concomitant]
  7. BEHEPAN [Concomitant]
  8. BRICANYL [Concomitant]

REACTIONS (1)
  - DEATH [None]
